FAERS Safety Report 8789024 (Version 2)
Quarter: 2012Q4

REPORT INFORMATION
  Report Type: 
  Country: AU (occurrence: AU)
  Receive Date: 20120917
  Receipt Date: 20121024
  Transmission Date: 20130627
  Serious: Yes (Hospitalization)
  Sender: FDA-Public Use
  Company Number: AU-009507513-1209AUS001424

PATIENT
  Age: 25 Year
  Sex: Female

DRUGS (2)
  1. VICTRELIS 200 MG [Suspect]
     Indication: HEPATITIS C
     Dosage: 800 mg, tid
     Route: 048
     Dates: start: 20120503, end: 20120824
  2. PEGATRON [Suspect]
     Indication: HEPATITIS C
     Dosage: 150 Microgram, qw
     Route: 058

REACTIONS (2)
  - Appendicitis [Not Recovered/Not Resolved]
  - Drug dose omission [Unknown]
